FAERS Safety Report 6967538-4 (Version None)
Quarter: 2010Q3

REPORT INFORMATION
  Report Type: 
  Country: None (occurrence: None)
  Receive Date: 20100907
  Receipt Date: 20100824
  Transmission Date: 20110219
  Serious: Yes (Death, Hospitalization, Other)
  Sender: FDA-Public Use
  Company Number: US-AMGEN-QUU430258

PATIENT
  Sex: Male
  Weight: 87.2 kg

DRUGS (6)
  1. ENBREL [Suspect]
     Indication: RHEUMATOID ARTHRITIS
     Route: 058
     Dates: start: 20021113, end: 20100412
  2. PREDNISONE [Concomitant]
  3. LEVOXYL [Concomitant]
  4. LIPITOR [Concomitant]
  5. PAXIL [Concomitant]
  6. VICODIN [Concomitant]

REACTIONS (28)
  - ANAEMIA [None]
  - ARRHYTHMIA SUPRAVENTRICULAR [None]
  - ARTERIOSCLEROSIS [None]
  - BLADDER CANCER [None]
  - BLOOD CULTURE POSITIVE [None]
  - CARDIOMEGALY [None]
  - CEREBROVASCULAR ACCIDENT [None]
  - CEREBROVASCULAR DISORDER [None]
  - CONVULSION [None]
  - DIFFUSE LARGE B-CELL LYMPHOMA [None]
  - ENGRAFTMENT SYNDROME [None]
  - EPISTAXIS [None]
  - FEBRILE NEUTROPENIA [None]
  - FLUID RETENTION [None]
  - HEART VALVE INCOMPETENCE [None]
  - HYPERTENSION [None]
  - INGUINAL HERNIA [None]
  - KNEE ARTHROPLASTY [None]
  - LUNG NEOPLASM [None]
  - MYOCARDIAL INFARCTION [None]
  - PANNICULITIS [None]
  - PULMONARY EMBOLISM [None]
  - RENAL FAILURE ACUTE [None]
  - SPINAL COMPRESSION FRACTURE [None]
  - THROMBOCYTOPENIA [None]
  - THROMBOPHLEBITIS [None]
  - URINARY TRACT INFECTION [None]
  - VERTEBRAL ARTERY STENOSIS [None]
